FAERS Safety Report 6327512-8 (Version None)
Quarter: 2009Q3

REPORT INFORMATION
  Report Type: 
  Country: None (occurrence: None)
  Receive Date: 20090820
  Receipt Date: 20090812
  Transmission Date: 20100115
  Serious: Yes (Hospitalization, Other)
  Sender: FDA-Public Use
  Company Number: CHNY2009DE02947

PATIENT
  Age: 13 Year
  Sex: Female
  Weight: 41.5 kg

DRUGS (7)
  1. HYOSCINE HBR HYT [Suspect]
     Indication: SALIVARY HYPERSECRETION
     Dosage: 1 DF, Q72H, TRANSDERMAL
     Route: 062
     Dates: start: 20090514, end: 20090614
  2. HYOSCINE HBR HYT [Suspect]
     Indication: SALIVARY HYPERSECRETION
     Dosage: 1 DF, Q72H, TRANSDERMAL
     Route: 062
     Dates: end: 20090717
  3. VALPROIC ACID [Concomitant]
  4. TRILEPTAL [Concomitant]
  5. ANTIHISTAMINES (NO INGREDIENTS/SUBSTANCES) [Concomitant]
  6. AURIUS (DESLORATADINE) [Concomitant]
  7. APYDAN (OXCARBAZEPINE) [Concomitant]

REACTIONS (16)
  - AGITATION [None]
  - ANXIETY [None]
  - APATHY [None]
  - APPLICATION SITE ERYTHEMA [None]
  - ASTHENIA [None]
  - CYANOSIS [None]
  - DIZZINESS [None]
  - ENURESIS [None]
  - FATIGUE [None]
  - GAIT DISTURBANCE [None]
  - GRAND MAL CONVULSION [None]
  - MIDDLE INSOMNIA [None]
  - NAUSEA [None]
  - OFF LABEL USE [None]
  - RESTLESSNESS [None]
  - VOMITING [None]
